FAERS Safety Report 14594513 (Version 1)
Quarter: 2018Q1

REPORT INFORMATION
  Report Type: Spontaneous
  Country: CA (occurrence: CA)
  Receive Date: 20180302
  Receipt Date: 20180302
  Transmission Date: 20180509
  Serious: Yes (Disabling, Other)
  Sender: FDA-Public Use
  Company Number: CA-TEVA-2018-CA-863824

PATIENT
  Age: 47 Year
  Sex: Male
  Weight: 80 kg

DRUGS (4)
  1. ADVIL [Concomitant]
     Active Substance: IBUPROFEN
  2. TEVA-CIPROFLOXACIN [Suspect]
     Active Substance: CIPROFLOXACIN
     Indication: ORCHITIS
  3. TEVA-CIPROFLOXACIN [Suspect]
     Active Substance: CIPROFLOXACIN
     Indication: EPIDIDYMITIS
  4. TEVA-CIPROFLOXACIN [Suspect]
     Active Substance: CIPROFLOXACIN
     Indication: TESTICULAR PAIN
     Dosage: 1000 MILLIGRAM DAILY;
     Route: 048

REACTIONS (13)
  - Arthralgia [Not Recovered/Not Resolved]
  - Muscle tightness [Not Recovered/Not Resolved]
  - Musculoskeletal pain [Not Recovered/Not Resolved]
  - Pain in extremity [Not Recovered/Not Resolved]
  - Tendon discomfort [Not Recovered/Not Resolved]
  - Tendon pain [Not Recovered/Not Resolved]
  - Swelling [Not Recovered/Not Resolved]
  - Gait disturbance [Not Recovered/Not Resolved]
  - Burning sensation [Not Recovered/Not Resolved]
  - Feeling cold [Not Recovered/Not Resolved]
  - Joint range of motion decreased [Not Recovered/Not Resolved]
  - Pain [Not Recovered/Not Resolved]
  - Sensory disturbance [Not Recovered/Not Resolved]
